FAERS Safety Report 15484798 (Version 1)
Quarter: 2018Q4

REPORT INFORMATION
  Report Type: Spontaneous
  Country: IT (occurrence: IT)
  Receive Date: 20181010
  Receipt Date: 20181010
  Transmission Date: 20190205
  Serious: Yes (Hospitalization, Other)
  Sender: FDA-Public Use
  Company Number: IT-ALLERGAN-CIP02000108

PATIENT
  Age: 70 Year
  Sex: Female

DRUGS (4)
  1. L-THYROXIN [Concomitant]
     Active Substance: LEVOTHYROXINE SODIUM
     Indication: HYPOTHYROIDISM
  2. MESALAZINE UNK [Suspect]
     Active Substance: MESALAMINE
     Dosage: 1200 MG DAILY
     Route: 048
  3. RANITIDINE. [Concomitant]
     Active Substance: RANITIDINE
     Dosage: UNK
  4. MESALAZINE UNK [Suspect]
     Active Substance: MESALAMINE
     Indication: COLITIS ULCERATIVE
     Dosage: 2400 MG DAILY
     Route: 048

REACTIONS (12)
  - Pulmonary fibrosis [Recovered/Resolved]
  - Blood bicarbonate increased [Recovered/Resolved]
  - Antinuclear antibody positive [Not Recovered/Not Resolved]
  - Carbon dioxide increased [Recovered/Resolved]
  - Alveolitis [Recovered/Resolved]
  - Oxygen saturation decreased [Recovered/Resolved]
  - Interstitial lung disease [Recovered/Resolved]
  - Dyspnoea exertional [Recovered/Resolved]
  - DNA antibody positive [Recovered/Resolved]
  - PO2 decreased [Recovered/Resolved]
  - Amylase increased [Not Recovered/Not Resolved]
  - Cough [Recovered/Resolved]
